FAERS Safety Report 24539810 (Version 1)
Quarter: 2024Q4

REPORT INFORMATION
  Report Type: Spontaneous
  Country: US (occurrence: None)
  Receive Date: 20241022
  Receipt Date: 20241022
  Transmission Date: 20250114
  Serious: Yes (Other)
  Sender: Public
  Company Number: None

PATIENT
  Age: 41 Year
  Sex: Male
  Weight: 81 kg

DRUGS (1)
  1. KENALOG-40 [Suspect]
     Active Substance: TRIAMCINOLONE ACETONIDE
     Indication: Drug therapy
     Dosage: FREQUENCY : ONCE;?OTHER ROUTE : INJECTED INTO JOINT;?
     Route: 050
     Dates: start: 20241003, end: 20241003

REACTIONS (6)
  - Arthralgia [None]
  - Injection site pain [None]
  - Constipation [None]
  - Vision blurred [None]
  - Paraesthesia [None]
  - Hypoaesthesia [None]

NARRATIVE: CASE EVENT DATE: 20241003
